FAERS Safety Report 5007124-9 (Version None)
Quarter: 2006Q2

REPORT INFORMATION
  Report Type: 
  Country: None (occurrence: None)
  Receive Date: 20060519
  Receipt Date: 20060307
  Transmission Date: 20061013
  Serious: Yes (Death, Hospitalization)
  Sender: FDA-Public Use
  Company Number: NL-ABBOTT-06P-114-0327303-03

PATIENT
  Sex: Female
  Weight: 74 kg

DRUGS (19)
  1. HUMIRA [Suspect]
     Indication: RHEUMATOID ARTHRITIS
     Route: 058
     Dates: start: 20040505, end: 20051019
  2. LEFLUNOMIDE [Concomitant]
     Indication: RHEUMATOID ARTHRITIS
     Dates: start: 20021029
  3. ALFACALCIDOL [Concomitant]
     Indication: OSTEOPOROSIS
     Dates: start: 20021001
  4. CALCIUM SANDOZ [Concomitant]
     Indication: OSTEOPOROSIS
     Dates: start: 20021001
  5. LISINOPRIL [Concomitant]
     Indication: HYPERTENSION
     Dates: start: 19970225
  6. PARACETAMOL [Concomitant]
     Indication: RHEUMATOID ARTHRITIS
     Dates: start: 20030101
  7. CODEINE [Concomitant]
     Indication: COUGH
     Dates: start: 20020101
  8. OMEPRAZOLE [Concomitant]
     Indication: GASTRIC DISORDER
     Dates: start: 19970901
  9. FUROSEMIDE [Concomitant]
     Indication: HYPERTENSION
     Dates: start: 20021001
  10. B-KOMPLEX ^LECIVA^ [Concomitant]
     Indication: RHEUMATOID ARTHRITIS
     Dates: start: 19890104
  11. FUROSEMIDE [Concomitant]
     Dates: start: 19890104
  12. ACTRAPID [Concomitant]
     Indication: DIABETES MELLITUS
     Dates: start: 20030610
  13. ISOPHANE INSULIN [Concomitant]
     Indication: DIABETES MELLITUS
     Dates: start: 20030610
  14. PAMIDRONATE DISODIUM [Concomitant]
     Indication: OSTEOPOROSIS
     Dates: start: 20021001
  15. DICLOFENAC POTASSIUM [Concomitant]
     Indication: RHEUMATOID ARTHRITIS
     Dates: start: 20030101
  16. AMLODIPINE [Concomitant]
     Indication: HYPERTENSION
     Dates: start: 20040101
  17. SOTALOL HCL [Concomitant]
     Indication: HYPERTENSION
     Dates: start: 20050101
  18. ACENOCOUMAROL [Concomitant]
     Indication: ANTICOAGULANT THERAPY
     Dates: start: 20050101
  19. COMMERCIAL HUMIRA [Concomitant]
     Indication: RHEUMATOID ARTHRITIS
     Route: 058
     Dates: start: 20040225

REACTIONS (2)
  - DEATH [None]
  - OSTEOMYELITIS [None]
